FAERS Safety Report 5831982-9 (Version None)
Quarter: 2008Q3

REPORT INFORMATION
  Report Type: 
  Country: None (occurrence: None)
  Receive Date: 20080731
  Receipt Date: 20080718
  Transmission Date: 20090109
  Serious: Yes (Congenital Anomaly)
  Sender: FDA-Public Use
  Company Number: 1000000193

PATIENT
  Sex: 0

DRUGS (3)
  1. CITALOPRAM HYDROBROMIDE [Suspect]
     Dosage: 40 MG, TRANSPLACENTAL
     Route: 064
     Dates: start: 20080101, end: 20080423
  2. PROPRANOL [Suspect]
     Dosage: 30 MG (10 MG, 3 IN 1 D),TRANSPLACENTAL
     Route: 064
     Dates: start: 20080101
  3. DICLOFENAC SODIUM [Suspect]
     Dosage: 150 MG (50 MG,3 IN 1 D),TRANSPLACENTAL
     Route: 064
     Dates: start: 20080101

REACTIONS (5)
  - ABORTION INDUCED [None]
  - ANENCEPHALY [None]
  - DRUG EXPOSURE DURING PREGNANCY [None]
  - MATERNAL DRUGS AFFECTING FOETUS [None]
  - PREGNANCY [None]
